FAERS Safety Report 9783235 (Version 1)
Quarter: 2013Q4

REPORT INFORMATION
  Report Type: Spontaneous
  Country: RU (occurrence: RU)
  Receive Date: 20131226
  Receipt Date: 20131226
  Transmission Date: 20140711
  Serious: Yes (Other)
  Sender: FDA-Public Use
  Company Number: RU-UCBSA-106886

PATIENT
  Sex: 0

DRUGS (3)
  1. KEPPRA [Suspect]
     Indication: EPILEPSY
     Route: 064
     Dates: start: 2010
  2. VALPROIC ACID [Concomitant]
     Indication: EPILEPSY
     Dates: start: 2010
  3. CLONAZEPAM [Concomitant]
     Indication: EPILEPSY
     Route: 064
     Dates: start: 2010

REACTIONS (3)
  - Developmental delay [Unknown]
  - Overdose [Recovered/Resolved]
  - Foetal exposure during pregnancy [Recovered/Resolved]
